FAERS Safety Report 10068415 (Version 2)
Quarter: 2014Q2

REPORT INFORMATION
  Report Type: Spontaneous
  Country: US (occurrence: US)
  Receive Date: 20140409
  Receipt Date: 20140522
  Transmission Date: 20141212
  Serious: Yes (Death, Hospitalization)
  Sender: FDA-Public Use
  Company Number: US-TEVA-473500USA

PATIENT
  Sex: Male

DRUGS (1)
  1. SYNRIBO [Suspect]
     Indication: PRODUCT USED FOR UNKNOWN INDICATION
     Dosage: 1 CYCLE

REACTIONS (2)
  - Neutropenia [Fatal]
  - Sepsis [Fatal]
